FAERS Safety Report 25183203 (Version 3)
Quarter: 2025Q2

REPORT INFORMATION
  Report Type: Spontaneous
  Country: JP (occurrence: JP)
  Receive Date: 20250410
  Receipt Date: 20250504
  Transmission Date: 20250716
  Serious: Yes (Hospitalization, Other)
  Sender: SANOFI AVENTIS
  Company Number: JP-SA-2025SA102184

PATIENT
  Age: 30 Year
  Sex: Female
  Weight: 61.6 kg

DRUGS (5)
  1. RIFAMPIN [Suspect]
     Active Substance: RIFAMPIN
     Indication: Lymph node tuberculosis
     Dosage: 450 MG QD
  2. LEVOFLOXACIN [Suspect]
     Active Substance: LEVOFLOXACIN
     Indication: Lymph node tuberculosis
     Dosage: 500 MG QD
  3. ISONIAZID [Suspect]
     Active Substance: ISONIAZID
     Indication: Lymph node tuberculosis
     Dosage: 300 MG QD
  4. ETHAMBUTOL [Suspect]
     Active Substance: ETHAMBUTOL HYDROCHLORIDE
     Indication: Lymph node tuberculosis
  5. PYRAZINAMIDE [Suspect]
     Active Substance: PYRAZINAMIDE
     Indication: Lymph node tuberculosis

REACTIONS (12)
  - Pericardial effusion [Recovering/Resolving]
  - Pyrexia [Recovering/Resolving]
  - Chest pain [Recovering/Resolving]
  - Sinus tachycardia [Recovering/Resolving]
  - Paradoxical drug reaction [Recovering/Resolving]
  - Lymph node tuberculosis [Recovering/Resolving]
  - Condition aggravated [Recovering/Resolving]
  - Haemoptysis [Recovering/Resolving]
  - Pneumonia [Recovering/Resolving]
  - Tracheal stenosis [Recovering/Resolving]
  - Lymphadenopathy [Recovering/Resolving]
  - Mediastinal mass [Recovering/Resolving]
